FAERS Safety Report 18915081 (Version 1)
Quarter: 2021Q1

REPORT INFORMATION
  Report Type: Report from Study
  Country: CN (occurrence: CN)
  Receive Date: 20210218
  Receipt Date: 20210218
  Transmission Date: 20210420
  Serious: Yes (Other)
  Sender: FDA-Public Use
  Company Number: CN-GILEAD-2021-0517679

PATIENT

DRUGS (1)
  1. ADEFOVIR DIPIVOXIL. [Suspect]
     Active Substance: ADEFOVIR DIPIVOXIL
     Indication: ANTI-INFECTIVE THERAPY
     Route: 065

REACTIONS (1)
  - Fanconi syndrome [Unknown]
